FAERS Safety Report 7635043-8 (Version None)
Quarter: 2011Q3

REPORT INFORMATION
  Report Type: 
  Country: None (occurrence: None)
  Receive Date: 20110726
  Receipt Date: 20110719
  Transmission Date: 20111222
  Serious: Yes (Death)
  Sender: FDA-Public Use
  Company Number: US-GENZYME-FLUD-1001175

PATIENT

DRUGS (13)
  1. ANTIFUNGALS [Concomitant]
     Indication: PRODUCT USED FOR UNKNOWN INDICATION
     Dosage: UNK
     Route: 065
  2. THYMOGLOBULIN [Suspect]
     Indication: MYELODYSPLASTIC SYNDROME
  3. THYMOGLOBULIN [Suspect]
     Indication: STEM CELL TRANSPLANT
     Dosage: 1 MG/KG, QD X 4 DAYS PRETRANSPLANT
     Route: 065
  4. ACYCLOVIR [Concomitant]
  5. BUSULFAN [Suspect]
     Indication: MYELODYSPLASTIC SYNDROME
  6. CELLCEPT [Concomitant]
     Indication: PROPHYLAXIS AGAINST GRAFT VERSUS HOST DISEASE
     Dosage: UNK, FIRST 50 DAYS POST-TRANSPLANT
     Route: 065
  7. ACYCLOVIR [Concomitant]
     Indication: ANTIVIRAL PROPHYLAXIS
     Dosage: UNK
     Route: 065
  8. ANTIBIOTICS [Concomitant]
     Indication: PRODUCT USED FOR UNKNOWN INDICATION
     Dosage: UNK
     Route: 065
  9. FLUDARA [Suspect]
     Indication: STEM CELL TRANSPLANT
     Dosage: 30 MG/M2, QD X 6 DAYS
     Route: 065
  10. BUSULFAN [Suspect]
     Indication: STEM CELL TRANSPLANT
     Dosage: UNK, SINGLE DOSE X 2 TARGETED ABSOLUTE NEUTROPHIL COUNT AT 4000 MCMOL X MIN PER DAY
     Route: 065
  11. CYCLOSPORINE [Concomitant]
     Indication: PROPHYLAXIS AGAINST GRAFT VERSUS HOST DISEASE
     Dosage: UNK, STARTED ON DAY -1 PRE-SCT
     Route: 065
  12. FLUDARA [Suspect]
     Indication: MYELODYSPLASTIC SYNDROME
  13. FLUCONAZOLE [Concomitant]
     Indication: ANTIFUNGAL PROPHYLAXIS
     Dosage: UNK, BEFORE AND DURING TRANSPLANT
     Route: 065

REACTIONS (1)
  - BACTERIAL INFECTION [None]
